FAERS Safety Report 10660074 (Version 2)
Quarter: 2014Q4

REPORT INFORMATION
  Report Type: Spontaneous
  Country: CA (occurrence: CA)
  Receive Date: 20141217
  Receipt Date: 20141226
  Transmission Date: 20150529
  Serious: Yes (Other)
  Sender: FDA-Public Use
  Company Number: CA-GE HEALTHCARE MEDICAL DIAGNOSTICS-OMPQ-PR-1412S-1567

PATIENT
  Age: 93 Year
  Sex: Male
  Weight: 90.8 kg

DRUGS (18)
  1. LIPITOR [Concomitant]
     Active Substance: ATORVASTATIN CALCIUM
  2. FRAGMIN [Concomitant]
     Active Substance: DALTEPARIN SODIUM
  3. FUROSEMIDE. [Concomitant]
     Active Substance: FUROSEMIDE
  4. NITROGLYCERIN. [Concomitant]
     Active Substance: NITROGLYCERIN
  5. COVERSYL [Concomitant]
     Active Substance: PERINDOPRIL
  6. HYDROCORTISONE CREAM [Concomitant]
     Active Substance: HYDROCORTISONE
  7. PANTOLOC [Concomitant]
     Active Substance: PANTOPRAZOLE SODIUM
  8. LORAZEPAM. [Concomitant]
     Active Substance: LORAZEPAM
  9. OMNIPAQUE [Suspect]
     Active Substance: IOHEXOL
     Indication: DIAGNOSTIC PROCEDURE
  10. CITALOPRAM [Concomitant]
     Active Substance: CITALOPRAM HYDROBROMIDE
  11. COLACE [Concomitant]
     Active Substance: DOCUSATE SODIUM
  12. FERROUS FUMERATE [Concomitant]
     Active Substance: FERROUS FUMARATE
  13. METOPROLOL [Concomitant]
     Active Substance: METOPROLOL
  14. OMNIPAQUE [Suspect]
     Active Substance: IOHEXOL
     Indication: CARDIAC FAILURE
     Route: 042
     Dates: start: 20141204, end: 20141204
  15. ASPIRIN. [Concomitant]
     Active Substance: ASPIRIN
  16. SPIRONOLACTONE. [Concomitant]
     Active Substance: SPIRONOLACTONE
  17. TAMSULOSIN [Concomitant]
     Active Substance: TAMSULOSIN
  18. HYDROMORPHONE [Concomitant]
     Active Substance: HYDROMORPHONE

REACTIONS (3)
  - Dyspnoea [Recovered/Resolved]
  - Choking [Recovered/Resolved]
  - Nausea [Recovered/Resolved]

NARRATIVE: CASE EVENT DATE: 20141204
